FAERS Safety Report 8598167-7 (Version None)
Quarter: 2012Q3

REPORT INFORMATION
  Report Type: 
  Country: None (occurrence: None)
  Receive Date: 20120816
  Receipt Date: 20120814
  Transmission Date: 20120928
  Serious: Yes (Other)
  Sender: FDA-Public Use
  Company Number: PHHY2012JP070260

PATIENT
  Age: 38 Year
  Sex: Female

DRUGS (2)
  1. CARBAMAZEPINE [Suspect]
     Dosage: UNK UKN, UNK
  2. CARBAMAZEPINE [Suspect]
     Dosage: 400 MG/DAY

REACTIONS (7)
  - TONIC CLONIC MOVEMENTS [None]
  - APHASIA [None]
  - UNRESPONSIVE TO STIMULI [None]
  - STATUS EPILEPTICUS [None]
  - GRAND MAL CONVULSION [None]
  - MOVEMENT DISORDER [None]
  - AKINESIA [None]
